FAERS Safety Report 8521741-0 (Version None)
Quarter: 2012Q3

REPORT INFORMATION
  Report Type: 
  Country: None (occurrence: None)
  Receive Date: 20120719
  Receipt Date: 20120717
  Transmission Date: 20120928
  Serious: Yes (Death, Other)
  Sender: FDA-Public Use
  Company Number: PHHY2012SE061234

PATIENT
  Age: 38 Year
  Sex: Female

DRUGS (3)
  1. ALCOHOL [Suspect]
  2. AMITRIPTYLINE HCL [Suspect]
  3. PROPIOMAZINE [Suspect]

REACTIONS (5)
  - OVERDOSE [None]
  - ARRHYTHMIA [None]
  - DEPRESSED LEVEL OF CONSCIOUSNESS [None]
  - ELECTROCARDIOGRAM QRS COMPLEX PROLONGED [None]
  - CONVULSION [None]
